FAERS Safety Report 6274243-9 (Version None)
Quarter: 2009Q3

REPORT INFORMATION
  Report Type: 
  Country: None (occurrence: None)
  Receive Date: 20090720
  Receipt Date: 20071002
  Transmission Date: 20100115
  Serious: Yes (Other)
  Sender: FDA-Public Use
  Company Number: US-ASTRAZENECA-2007UW24987

PATIENT
  Age: 43 Year
  Sex: Male
  Weight: 84.8 kg

DRUGS (7)
  1. SEROQUEL [Suspect]
     Indication: BIPOLAR DISORDER
     Route: 048
     Dates: start: 20030601, end: 20051101
  2. ZYPREXA [Concomitant]
     Indication: BIPOLAR DISORDER
     Dosage: 10 MG - 30 MG
     Route: 048
     Dates: start: 20000101, end: 20051201
  3. ZYPREXA [Concomitant]
     Indication: SLEEP DISORDER
     Dosage: 10 MG - 30 MG
     Route: 048
     Dates: start: 20000101, end: 20051201
  4. ZYPREXA [Concomitant]
     Indication: ANXIETY
     Dosage: 10 MG - 30 MG
     Route: 048
     Dates: start: 20000101, end: 20051201
  5. RISPERDAL [Concomitant]
     Indication: BIPOLAR DISORDER
     Route: 048
     Dates: start: 20000701, end: 20000801
  6. CLOZARIL [Concomitant]
     Route: 048
  7. LITHIUM [Concomitant]
     Route: 048

REACTIONS (7)
  - ABDOMINAL DISCOMFORT [None]
  - BLADDER DISORDER [None]
  - CEREBROVASCULAR ACCIDENT [None]
  - DIABETES MELLITUS [None]
  - HAEMORRHOID OPERATION [None]
  - MYOCARDIAL INFARCTION [None]
  - SLEEP APNOEA SYNDROME [None]
